FAERS Safety Report 8229284-9 (Version None)
Quarter: 2012Q1

REPORT INFORMATION
  Report Type: 
  Country: None (occurrence: None)
  Receive Date: 20120322
  Receipt Date: 20120313
  Transmission Date: 20120608
  Serious: Yes (Death, Hospitalization)
  Sender: FDA-Public Use
  Company Number: US-ACTELION-A-NJ2012-59445

PATIENT

DRUGS (5)
  1. TRACLEER [Suspect]
     Indication: PULMONARY ARTERIAL HYPERTENSION
     Dosage: UNK
     Route: 048
     Dates: start: 20080408
  2. REVATIO [Concomitant]
  3. LASIX [Concomitant]
  4. BETA BLOCKING AGENTS [Concomitant]
  5. COUMADIN [Concomitant]

REACTIONS (5)
  - DYSPNOEA [None]
  - DEATH [None]
  - HEART RATE INCREASED [None]
  - REGURGITATION [None]
  - RETCHING [None]
